FAERS Safety Report 24558137 (Version 4)
Quarter: 2025Q4

REPORT INFORMATION
  Report Type: Report from Study
  Country: US (occurrence: US)
  Receive Date: 20241028
  Receipt Date: 20251121
  Transmission Date: 20260117
  Serious: Yes (Other)
  Sender: UCB
  Company Number: US-UCBSA-2024055046

PATIENT
  Age: 20 Year
  Weight: 36.281 kg

DRUGS (1)
  1. FENFLURAMINE HYDROCHLORIDE [Suspect]
     Active Substance: FENFLURAMINE HYDROCHLORIDE
     Indication: Product used for unknown indication
     Dosage: 26 MILLIGRAM/DAY

REACTIONS (2)
  - Tricuspid valve incompetence [Not Recovered/Not Resolved]
  - Cardiac disorder [Not Recovered/Not Resolved]
